FAERS Safety Report 11308062 (Version 1)
Quarter: 2015Q3

REPORT INFORMATION
  Report Type: Spontaneous
  Country: US (occurrence: US)
  Receive Date: 20150724
  Receipt Date: 20150724
  Transmission Date: 20151125
  Serious: No
  Sender: FDA-Public Use
  Company Number: US-009507513-1505USA006481

PATIENT
  Age: 36 Year
  Sex: Female

DRUGS (4)
  1. LEVOTHYROXINE SODIUM. [Suspect]
     Active Substance: LEVOTHYROXINE SODIUM
     Indication: POST PROCEDURAL HYPOTHYROIDISM
     Dosage: UNKNOWN
  2. PROPYLTHIOURACIL. [Suspect]
     Active Substance: PROPYLTHIOURACIL
     Dosage: DAILY DOSE: 250 MG THREE TIMES A DAY DOSING
  3. BETAMETHASONE. [Suspect]
     Active Substance: BETAMETHASONE
     Dosage: UNKNOWN
  4. PROPYLTHIOURACIL. [Suspect]
     Active Substance: PROPYLTHIOURACIL
     Dosage: DAILY DOSE: 600 MG IN THREE TIMES A DAY DOSING

REACTIONS (1)
  - Exposure during pregnancy [Unknown]
